FAERS Safety Report 17049269 (Version 1)
Quarter: 2019Q4

REPORT INFORMATION
  Report Type: Report from Study
  Country: DE (occurrence: DE)
  Receive Date: 20191119
  Receipt Date: 20191119
  Transmission Date: 20200122
  Serious: Yes (Other)
  Sender: FDA-Public Use
  Company Number: PHHY2018DE050373

PATIENT
  Sex: Male

DRUGS (3)
  1. GILENYA [Suspect]
     Active Substance: FINGOLIMOD HYDROCHLORIDE
     Indication: MULTIPLE SCLEROSIS
     Dosage: 0.5 MG, QD
     Route: 048
     Dates: start: 20171120
  2. IBUPROFEN. [Concomitant]
     Active Substance: IBUPROFEN
     Indication: BACK PAIN
     Dosage: UNK, PRN
     Route: 065
  3. TRAMABIAN [Concomitant]
     Indication: BACK PAIN
     Dosage: 37.5/325  PRN
     Route: 065

REACTIONS (2)
  - Hypertension [Recovered/Resolved]
  - Hypertension [Not Recovered/Not Resolved]

NARRATIVE: CASE EVENT DATE: 20171218
